FAERS Safety Report 5796021-7 (Version None)
Quarter: 2008Q3

REPORT INFORMATION
  Report Type: 
  Country: None (occurrence: None)
  Receive Date: 20080701
  Receipt Date: 20080618
  Transmission Date: 20090109
  Serious: Yes (Hospitalization)
  Sender: FDA-Public Use
  Company Number: TH-ROCHE-503905

PATIENT
  Sex: Male
  Weight: 46 kg

DRUGS (3)
  1. PEGASYS [Suspect]
     Route: 058
     Dates: start: 20070201, end: 20070628
  2. PEGASYS [Suspect]
     Route: 058
     Dates: start: 20070705
  3. RIBAVIRIN [Suspect]
     Route: 048
     Dates: start: 20070201

REACTIONS (1)
  - PRESYNCOPE [None]
